FAERS Safety Report 8356242-6 (Version None)
Quarter: 2012Q2

REPORT INFORMATION
  Report Type: 
  Country: None (occurrence: None)
  Receive Date: 20120510
  Receipt Date: 20120502
  Transmission Date: 20120825
  Serious: Yes (Hospitalization)
  Sender: FDA-Public Use
  Company Number: JPI-P-021105

PATIENT
  Age: 32 Year
  Sex: Female

DRUGS (7)
  1. LURASIDONE HYDROCHLORIDE [Concomitant]
  2. GABAPENTIN [Concomitant]
  3. PREGABALIN [Concomitant]
  4. CLONAZEPAM [Concomitant]
  5. XYREM [Suspect]
     Indication: INSOMNIA
     Dosage: 6;8 GM (3;4 GM, 2 IN 1 D, 2ND DOSE), ORAL
     Route: 048
     Dates: start: 20111104
  6. XYREM [Suspect]
     Indication: INSOMNIA
     Dosage: 6;8 GM (3;4 GM, 2 IN 1 D, 2ND DOSE), ORAL
     Route: 048
     Dates: start: 20110124, end: 20110101
  7. XYREM [Suspect]
     Indication: INSOMNIA
     Dosage: 6;8 GM (3;4 GM, 2 IN 1 D, 2ND DOSE), ORAL
     Route: 048
     Dates: start: 20110101, end: 20110101

REACTIONS (14)
  - MENTAL DISORDER [None]
  - BIPOLAR DISORDER [None]
  - MIDDLE INSOMNIA [None]
  - PSYCHOTIC DISORDER [None]
  - MANIA [None]
  - DEHYDRATION [None]
  - FEELING ABNORMAL [None]
  - SOMNOLENCE [None]
  - DIPLOPIA [None]
  - HEADACHE [None]
  - INSOMNIA [None]
  - FATIGUE [None]
  - CRYING [None]
  - PALPITATIONS [None]
